FAERS Safety Report 9214884 (Version 4)
Quarter: 2014Q1

REPORT INFORMATION
  Report Type: Spontaneous
  Country: US (occurrence: US)
  Receive Date: 20130405
  Receipt Date: 20140204
  Transmission Date: 20141002
  Serious: Yes (Hospitalization)
  Sender: FDA-Public Use
  Company Number: US-GLAXOSMITHKLINE-A1018907A

PATIENT
  Age: 17 Year
  Sex: Female

DRUGS (3)
  1. FLOLAN [Suspect]
     Indication: PULMONARY ARTERIAL HYPERTENSION
     Dosage: 154NGKM CONTINUOUS
     Route: 042
     Dates: start: 20100406
  2. ADCIRCA [Concomitant]
  3. COUMADIN [Concomitant]

REACTIONS (6)
  - Investigation [Unknown]
  - Heart rate increased [Unknown]
  - Respiratory disorder [Unknown]
  - Intensive care [Unknown]
  - Arrhythmia [Unknown]
  - Lung transplant [Unknown]
